FAERS Safety Report 4379089-4 (Version None)
Quarter: 2004Q2

REPORT INFORMATION
  Report Type: 
  Country: None (occurrence: None)
  Receive Date: 20040610
  Receipt Date: 20040601
  Transmission Date: 20050107
  Serious: Yes (Death)
  Sender: FDA-Public Use
  Company Number: 2004SE03092

PATIENT
  Age: 82 Year
  Sex: Male

DRUGS (7)
  1. BLOPRESS [Suspect]
     Indication: HYPERTENSION
     Dosage: 4 MG PO
     Route: 048
     Dates: start: 20030807, end: 20031126
  2. BAYASPIRIN [Suspect]
  3. MAINTATE [Suspect]
  4. PANALDINE [Suspect]
  5. GASTER D [Suspect]
  6. WARFARIN SODIUM [Suspect]
  7. CIBENOL [Suspect]

REACTIONS (1)
  - INTERSTITIAL LUNG DISEASE [None]
